FAERS Safety Report 16701235 (Version 1)
Quarter: 2019Q3

REPORT INFORMATION
  Report Type: Spontaneous
  Country: AT (occurrence: AT)
  Receive Date: 20190814
  Receipt Date: 20190814
  Transmission Date: 20191004
  Serious: Yes (Life-Threatening, Hospitalization)
  Sender: FDA-Public Use
  Company Number: AT-B.I. PHARMACEUTICALS,INC./RIDGEFIELD-2019-12-002556

PATIENT
  Age: 55 Year
  Sex: Male

DRUGS (1)
  1. SYNJARDY [Suspect]
     Active Substance: EMPAGLIFLOZIN\METFORMIN HYDROCHLORIDE
     Indication: TYPE 2 DIABETES MELLITUS
     Dosage: 1 - 0 - 1
     Route: 048
     Dates: end: 20190731

REACTIONS (5)
  - Lactic acidosis [Recovered/Resolved]
  - Stupor [Recovered/Resolved]
  - Pneumonia [Recovered/Resolved]
  - Acute kidney injury [Recovered/Resolved]
  - Ketoacidosis [Recovered/Resolved]

NARRATIVE: CASE EVENT DATE: 20190731
